FAERS Safety Report 4678597-6 (Version None)
Quarter: 2005Q2

REPORT INFORMATION
  Report Type: 
  Country: None (occurrence: None)
  Receive Date: 20050527
  Receipt Date: 20050512
  Transmission Date: 20051028
  Serious: Yes (Death)
  Sender: FDA-Public Use
  Company Number: 1797

PATIENT
  Age: 13 Year
  Sex: Male

DRUGS (4)
  1. TARGRETIN [Suspect]
     Indication: T-CELL LYMPHOMA
     Dosage: 150 MG DAILY PO
     Route: 048
     Dates: start: 20050420, end: 20050420
  2. CLINDAMYCIN [Concomitant]
  3. METHOTREXATE [Concomitant]
  4. PREDNISONE TAB [Concomitant]

REACTIONS (4)
  - GASTROINTESTINAL HAEMORRHAGE [None]
  - METASTASES TO GASTROINTESTINAL TRACT [None]
  - SHOCK [None]
  - T-CELL LYMPHOMA [None]
